FAERS Safety Report 8267560-4 (Version None)
Quarter: 2012Q2

REPORT INFORMATION
  Report Type: 
  Country: None (occurrence: None)
  Receive Date: 20120405
  Receipt Date: 20120405
  Transmission Date: 20120825
  Serious: Yes (Hospitalization)
  Sender: FDA-Public Use
  Company Number: None

PATIENT
  Age: 73 Year
  Sex: Male
  Weight: 53.0709 kg

DRUGS (1)
  1. WARFARIN SODIUM [Suspect]
     Dosage: 6 MG EVERY DAY PO
     Route: 048

REACTIONS (2)
  - HYPOTENSION [None]
  - GASTROINTESTINAL HAEMORRHAGE [None]
